FAERS Safety Report 8091163-8 (Version None)
Quarter: 2012Q1

REPORT INFORMATION
  Report Type: 
  Country: None (occurrence: None)
  Receive Date: 20120129
  Receipt Date: 20110920
  Transmission Date: 20120608
  Serious: No
  Sender: FDA-Public Use
  Company Number: US-ABBOTT-11P-163-0856605-00

PATIENT
  Age: 62 Year
  Sex: Female

DRUGS (6)
  1. LORAZEPAM [Concomitant]
     Indication: ANXIETY
  2. PAXIL [Concomitant]
     Indication: ANXIETY
  3. LEVOTHYROXINE SODIUM [Concomitant]
     Indication: HYPOTHYROIDISM
  4. LORATADINE [Concomitant]
     Indication: HYPERSENSITIVITY
  5. HUMIRA [Suspect]
     Indication: PSORIASIS
     Dates: start: 20090101
  6. FLONASE [Concomitant]
     Indication: HYPERSENSITIVITY
     Route: 045

REACTIONS (4)
  - GINGIVAL BLEEDING [None]
  - IMMUNE SYSTEM DISORDER [None]
  - PYREXIA [None]
  - MALAISE [None]
